FAERS Safety Report 19221376 (Version 8)
Quarter: 2024Q1

REPORT INFORMATION
  Report Type: Report from Study
  Country: CR (occurrence: CR)
  Receive Date: 20210505
  Receipt Date: 20240209
  Transmission Date: 20240410
  Serious: Yes (Hospitalization)
  Sender: FDA-Public Use
  Company Number: PHHY2019CR191012

PATIENT
  Sex: Female
  Weight: 65.5 kg

DRUGS (9)
  1. SECUKINUMAB [Suspect]
     Active Substance: SECUKINUMAB
     Indication: Psoriatic arthropathy
     Dosage: 150 MG, QMO
     Route: 058
     Dates: start: 2017
  2. SECUKINUMAB [Suspect]
     Active Substance: SECUKINUMAB
     Dosage: 150 MG, UNKNOWN (VIAL)
     Route: 065
     Dates: start: 20181101
  3. SECUKINUMAB [Suspect]
     Active Substance: SECUKINUMAB
     Dosage: 150 MG, QMO (BENEATH THE SKIN, USUALLY VIA INJECTION)
     Route: 058
     Dates: start: 20181126
  4. SECUKINUMAB [Suspect]
     Active Substance: SECUKINUMAB
     Dosage: UNK (ON 26 DEC OF UNSPECIFIED YEAR)
     Route: 065
  5. EXFORGE HCT [Concomitant]
     Active Substance: AMLODIPINE BESYLATE\HYDROCHLOROTHIAZIDE\VALSARTAN
     Indication: Hypertension
     Dosage: UNK
     Route: 065
  6. FOLIC ACID [Concomitant]
     Active Substance: FOLIC ACID
     Indication: Product used for unknown indication
     Dosage: 1 MG
     Route: 065
  7. CRESTOR [Concomitant]
     Active Substance: ROSUVASTATIN CALCIUM
     Indication: Blood cholesterol
     Dosage: 3 MG
     Route: 065
  8. VITAMIN D NOS [Concomitant]
     Active Substance: VITAMIN D NOS
     Indication: Product used for unknown indication
     Dosage: 2000 UNITS
     Route: 065
  9. METHOTREXATE [Concomitant]
     Active Substance: METHOTREXATE
     Indication: Product used for unknown indication
     Dosage: 10 MG (4 TABLETS OF 2.5 MG)
     Route: 065

REACTIONS (19)
  - COVID-19 [Recovering/Resolving]
  - Fatigue [Unknown]
  - Muscle spasms [Recovered/Resolved with Sequelae]
  - Snoring [Unknown]
  - Influenza [Unknown]
  - Back pain [Recovered/Resolved]
  - Hypoaesthesia [Unknown]
  - Arthralgia [Recovering/Resolving]
  - Intervertebral disc displacement [Unknown]
  - Pain in extremity [Not Recovered/Not Resolved]
  - Finger deformity [Not Recovered/Not Resolved]
  - Pain [Recovered/Resolved with Sequelae]
  - Nerve compression [Recovered/Resolved]
  - Muscle spasms [Unknown]
  - Photosensitivity reaction [Unknown]
  - Cough [Unknown]
  - Nasopharyngitis [Unknown]
  - Psoriasis [Unknown]
  - Drug ineffective [Unknown]
